FAERS Safety Report 22373025 (Version 1)
Quarter: 2023Q2

REPORT INFORMATION
  Report Type: Report from Study
  Country: US (occurrence: US)
  Receive Date: 20230526
  Receipt Date: 20230526
  Transmission Date: 20230721
  Serious: Yes (Other)
  Sender: FDA-Public Use
  Company Number: US-JNJFOC-20230547319

PATIENT
  Age: 57 Year
  Sex: Male

DRUGS (1)
  1. SPRAVATO [Suspect]
     Active Substance: ESKETAMINE
     Indication: Depression
     Dosage: ^56 MG, 1 TOTAL DOSE^
     Dates: start: 20230516, end: 20230516

REACTIONS (8)
  - Brain injury [Unknown]
  - Mental impairment [Unknown]
  - Nasal injury [Unknown]
  - Memory impairment [Unknown]
  - Fear [Unknown]
  - Nervousness [Unknown]
  - Somnolence [Unknown]
  - Agitation [Unknown]

NARRATIVE: CASE EVENT DATE: 20230501
